FAERS Safety Report 5135430-6 (Version None)
Quarter: 2006Q4

REPORT INFORMATION
  Report Type: 
  Country: None (occurrence: None)
  Receive Date: 20061026
  Receipt Date: 20061016
  Transmission Date: 20070319
  Serious: Yes (Hospitalization)
  Sender: FDA-Public Use
  Company Number: F1-EXT-2006-0062

PATIENT
  Age: 65 Year
  Sex: Male
  Weight: 70 kg

DRUGS (14)
  1. RANIPLEX [Suspect]
     Dosage: 50MG CYCLIC
     Route: 042
     Dates: start: 20060520
  2. FRAXODI [Suspect]
     Indication: DRUG USE FOR UNKNOWN INDICATION
     Dosage: .6ML UNKNOWN
  3. ZOFRAN [Suspect]
     Indication: DRUG USE FOR UNKNOWN INDICATION
     Route: 042
     Dates: start: 20060520
  4. DEXAMETHASONE 4MG TAB [Suspect]
     Dosage: 20MG CYCLIC
     Route: 042
     Dates: start: 20060520
  5. CAMPTOSAR [Suspect]
     Indication: COLON CANCER METASTATIC
     Dosage: 180MG CYCLIC
     Route: 042
     Dates: start: 20060520
  6. CETUXIMAB [Suspect]
     Indication: COLON CANCER METASTATIC
     Dosage: 250MG CYCLIC
     Route: 042
     Dates: start: 20060520
  7. POLARAMINE [Concomitant]
     Route: 042
     Dates: start: 20060520
  8. ATROPINE [Concomitant]
     Route: 042
     Dates: start: 20060520
  9. CORTANCYL [Concomitant]
     Route: 065
  10. NEXIUM [Concomitant]
     Route: 065
  11. SULFARLEM S 25 [Concomitant]
     Route: 065
  12. SERESTA 10 [Concomitant]
     Route: 065
  13. XANAX [Concomitant]
     Route: 065
  14. NEURONTIN [Concomitant]
     Route: 065

REACTIONS (5)
  - DEEP VEIN THROMBOSIS [None]
  - DRUG INEFFECTIVE [None]
  - DYSPNOEA [None]
  - PHLEBITIS [None]
  - PULMONARY EMBOLISM [None]
